FAERS Safety Report 8446647-7 (Version None)
Quarter: 2012Q2

REPORT INFORMATION
  Report Type: 
  Country: None (occurrence: None)
  Receive Date: 20120619
  Receipt Date: 20120612
  Transmission Date: 20120825
  Serious: No
  Sender: FDA-Public Use
  Company Number: US-BIOGENIDEC-2012BI012685

PATIENT
  Age: 52 Year
  Sex: Female

DRUGS (2)
  1. TYSABRI [Suspect]
     Indication: MULTIPLE SCLEROSIS
     Route: 042
     Dates: start: 20120405, end: 20120503
  2. AVONEX [Concomitant]
     Indication: MULTIPLE SCLEROSIS
     Route: 030
     Dates: start: 20000612

REACTIONS (7)
  - URTICARIA [None]
  - RASH [None]
  - ARTHRALGIA [None]
  - HYPERSENSITIVITY [None]
  - NAUSEA [None]
  - PRURITUS GENERALISED [None]
  - DIARRHOEA [None]
